FAERS Safety Report 23920009 (Version 10)
Quarter: 2025Q3

REPORT INFORMATION
  Report Type: Spontaneous
  Country: CN (occurrence: CN)
  Receive Date: 20240530
  Receipt Date: 20250908
  Transmission Date: 20251020
  Serious: Yes (Hospitalization)
  Sender: PFIZER
  Company Number: CN-PFIZER INC-PV202400068751

PATIENT
  Age: 20 Year
  Sex: Male

DRUGS (5)
  1. XYNTHA [Suspect]
     Active Substance: MOROCTOCOG ALFA
     Indication: Factor VIII deficiency
     Dates: start: 2023
  2. XYNTHA [Suspect]
     Active Substance: MOROCTOCOG ALFA
     Dosage: 1500 IU, Q12H
     Route: 041
     Dates: start: 20240503
  3. XYNTHA [Suspect]
     Active Substance: MOROCTOCOG ALFA
     Dosage: 1000 IU, Q12H
     Route: 041
     Dates: start: 20250408
  4. XYNTHA [Suspect]
     Active Substance: MOROCTOCOG ALFA
     Dosage: 1500 IU, 2X/DAY
     Route: 041
     Dates: start: 20250415
  5. XYNTHA [Suspect]
     Active Substance: MOROCTOCOG ALFA
     Dosage: 1500 IU, Q12H
     Route: 041
     Dates: start: 20250503

REACTIONS (18)
  - Abdominal pain [Recovering/Resolving]
  - Nausea [Unknown]
  - Vomiting [Recovered/Resolved]
  - White blood cell count increased [Unknown]
  - Amylase increased [Unknown]
  - Intra-abdominal haematoma [Unknown]
  - Intra-abdominal fluid collection [Unknown]
  - Intra-abdominal haemorrhage [Unknown]
  - Pelvic fluid collection [Unknown]
  - Gastrointestinal disorder [Unknown]
  - Pelvic congestion [Unknown]
  - Chest discomfort [Recovering/Resolving]
  - Oxygen saturation decreased [Unknown]
  - Pleural effusion [Recovered/Resolved]
  - Pelvic fluid collection [Unknown]
  - Muscular weakness [Unknown]
  - Weight decreased [Unknown]
  - Off label use [Unknown]

NARRATIVE: CASE EVENT DATE: 20240502
